FAERS Safety Report 4296483-0 (Version None)
Quarter: 2004Q1

REPORT INFORMATION
  Report Type: 
  Country: None (occurrence: None)
  Receive Date: 20040217
  Receipt Date: 20040205
  Transmission Date: 20041129
  Serious: Yes (Other)
  Sender: FDA-Public Use
  Company Number: PHBS2004DE01947

PATIENT
  Age: 40 Year
  Sex: Female

DRUGS (12)
  1. METOPROLOL [Suspect]
  2. VALPROIC ACID [Suspect]
  3. BENAZEPRIL HCL [Suspect]
  4. VANCOMYCIN [Concomitant]
     Indication: ENTERITIS
  5. IMIPENEM [Concomitant]
     Indication: ENTERITIS
  6. FLUCONAZOLE [Concomitant]
     Indication: ENTERITIS
  7. FUROSEMIDE [Concomitant]
  8. DIGITOXIN [Concomitant]
  9. INSULIN [Concomitant]
  10. HEPARIN [Concomitant]
  11. CLONIDINE [Concomitant]
  12. SALBUTAMOL [Concomitant]

REACTIONS (4)
  - BLISTER [None]
  - HEAT RASH [None]
  - RASH SCALY [None]
  - SALIVARY HYPERSECRETION [None]
